FAERS Safety Report 12535291 (Version 2)
Quarter: 2016Q3

REPORT INFORMATION
  Report Type: Spontaneous
  Country: US (occurrence: US)
  Receive Date: 20160707
  Receipt Date: 20160711
  Transmission Date: 20161109
  Serious: Yes (Hospitalization, Other)
  Sender: FDA-Public Use
  Company Number: US-PFIZER INC-2016320726

PATIENT
  Age: 80 Year
  Sex: Female
  Weight: 60.33 kg

DRUGS (9)
  1. SIMVASTATIN. [Concomitant]
     Active Substance: SIMVASTATIN
     Indication: BLOOD CHOLESTEROL ABNORMAL
     Dosage: 40 MG, DAILY
  2. LASIX [Concomitant]
     Active Substance: FUROSEMIDE
     Indication: FLUID RETENTION
     Dosage: 20 MG, DAILY
  3. IBRANCE [Suspect]
     Active Substance: PALBOCICLIB
     Indication: BREAST CANCER METASTATIC
     Dosage: 125 MG, CYCLIC (125MG CAPSULE ONCE A DAY FOR 21 DAYS, THEN OFF FOR SEVEN)
     Dates: start: 201504, end: 201509
  4. IBRANCE [Suspect]
     Active Substance: PALBOCICLIB
     Dosage: 100 MG, 1X/DAY
     Dates: start: 201510
  5. IBRANCE [Suspect]
     Active Substance: PALBOCICLIB
     Dosage: 75 UNK, UNK
  6. LETROZOLE. [Concomitant]
     Active Substance: LETROZOLE
     Dosage: 2.5 MG, DAILY
     Dates: start: 201504
  7. METOPROLOL. [Concomitant]
     Active Substance: METOPROLOL
     Indication: BLOOD PRESSURE ABNORMAL
     Dosage: 25 MG, 1X/DAY, TAKEN FOR YEARS
  8. LASIX [Concomitant]
     Active Substance: FUROSEMIDE
     Dosage: 40 MG, UNK
  9. CLOPIDOGREL [Concomitant]
     Active Substance: CLOPIDOGREL BISULFATE
     Indication: ANTICOAGULANT THERAPY
     Dosage: 75 MG, DAILY (TAKING FOR FIVE YEARS)

REACTIONS (14)
  - Constipation [Unknown]
  - Epistaxis [Recovered/Resolved]
  - Chills [Unknown]
  - Malaise [Unknown]
  - Nausea [Recovered/Resolved]
  - Fatigue [Recovered/Resolved]
  - Dehydration [Unknown]
  - Tremor [Unknown]
  - Sepsis [Recovered/Resolved]
  - Febrile neutropenia [Unknown]
  - White blood cell count decreased [Not Recovered/Not Resolved]
  - Hypotension [Recovered/Resolved]
  - Blood pressure abnormal [Unknown]
  - Weight decreased [Unknown]

NARRATIVE: CASE EVENT DATE: 201504
